FAERS Safety Report 14421605 (Version 2)
Quarter: 2018Q1

REPORT INFORMATION
  Report Type: Other
  Country: US (occurrence: US)
  Receive Date: 20180122
  Receipt Date: 20180131
  Transmission Date: 20180509
  Serious: Yes (Hospitalization, Other)
  Sender: FDA-Public Use
  Company Number: US-INTERCEPT-PMOCA2017001361

PATIENT

DRUGS (11)
  1. OCALIVA [Suspect]
     Active Substance: OBETICHOLIC ACID
     Dosage: 5 MG, QW
     Route: 048
  2. OCALIVA [Suspect]
     Active Substance: OBETICHOLIC ACID
     Dosage: 5 MG, QD
     Route: 048
     Dates: start: 20170910, end: 201801
  3. ESTRACE [Concomitant]
     Active Substance: ESTRADIOL
     Dosage: 0.5 MG, QD
     Route: 048
  4. ACTIGALL [Concomitant]
     Active Substance: URSODIOL
     Dosage: 300 MG, TID
     Route: 048
  5. LASIX [Concomitant]
     Active Substance: FUROSEMIDE
     Dosage: 20 MG, QD
     Route: 048
  6. OCALIVA [Suspect]
     Active Substance: OBETICHOLIC ACID
     Dosage: 5 MG, TWICE WEEKLY
     Route: 048
  7. ZOCOR [Concomitant]
     Active Substance: SIMVASTATIN
     Dosage: 40 MG, QHS
     Route: 048
  8. THERAGRAN [Concomitant]
     Active Substance: VITAMINS
     Dosage: 1 TABLET, QD
  9. ALDACTONE [Concomitant]
     Active Substance: SPIRONOLACTONE
     Dosage: 50 MG, QD
  10. OCALIVA [Suspect]
     Active Substance: OBETICHOLIC ACID
     Indication: PRIMARY BILIARY CHOLANGITIS
     Dosage: 10 MG, QD
     Route: 048
     Dates: start: 20171213, end: 20180112
  11. ZANTAC [Concomitant]
     Active Substance: RANITIDINE HYDROCHLORIDE
     Dosage: 150 MG, QHS
     Route: 048

REACTIONS (11)
  - Enterovirus test positive [Unknown]
  - Blood lactate dehydrogenase increased [Unknown]
  - Blood bilirubin increased [Unknown]
  - Human rhinovirus test positive [Unknown]
  - Pruritus [Unknown]
  - Peripheral swelling [Unknown]
  - Hepatitis acute [Recovered/Resolved]
  - Hepatic enzyme increased [Recovering/Resolving]
  - Abdominal pain upper [Unknown]
  - Model for end stage liver disease score increased [Unknown]
  - Vitamin B12 increased [Unknown]

NARRATIVE: CASE EVENT DATE: 2017
